FAERS Safety Report 9702961 (Version 4)
Quarter: 2014Q1

REPORT INFORMATION
  Report Type: Spontaneous
  Country: DE (occurrence: DE)
  Receive Date: 20131121
  Receipt Date: 20140225
  Transmission Date: 20141002
  Serious: Yes (Other)
  Sender: FDA-Public Use
  Company Number: DE-AMGEN-DEUSP2013081877

PATIENT
  Age: 48 Year
  Sex: Male

DRUGS (2)
  1. ENBREL [Suspect]
     Indication: PSORIATIC ARTHROPATHY
     Dosage: 50 MG, WEEKLY
     Route: 058
     Dates: start: 201211
  2. PREDNISOLONE [Concomitant]
     Dosage: 5 MG,UNK
     Route: 048

REACTIONS (2)
  - Refractory cytopenia with multilineage dysplasia [Unknown]
  - Pancytopenia [Not Recovered/Not Resolved]
